FAERS Safety Report 7693381-7 (Version None)
Quarter: 2011Q3

REPORT INFORMATION
  Report Type: 
  Country: None (occurrence: None)
  Receive Date: 20110816
  Receipt Date: 20110802
  Transmission Date: 20111222
  Serious: Yes (Other)
  Sender: FDA-Public Use
  Company Number: AUR-APL-2011-04516

PATIENT
  Age: 75 Year
  Sex: Female
  Weight: 67 kg

DRUGS (2)
  1. SIMVASTATIN [Suspect]
     Indication: TRANSIENT ISCHAEMIC ATTACK
     Dosage: (40 MG), ORAL
     Route: 048
     Dates: start: 20110705, end: 20110711
  2. ATENOLOL [Concomitant]

REACTIONS (2)
  - PSYCHOTIC BEHAVIOUR [None]
  - HALLUCINATION, VISUAL [None]
